FAERS Safety Report 4724686-7 (Version None)
Quarter: 2005Q3

REPORT INFORMATION
  Report Type: 
  Country: None (occurrence: None)
  Receive Date: 20050720
  Receipt Date: 20050720
  Transmission Date: 20060218
  Serious: Yes (Death)
  Sender: FDA-Public Use
  Company Number: None

PATIENT
  Age: 62 Year
  Sex: Female
  Weight: 94.8018 kg

DRUGS (17)
  1. FENTANYL [Suspect]
     Indication: FIBROMYALGIA
     Dosage: 50 MCG/HR   EVERY 72 HOURS   TRANSDERMA
     Route: 062
     Dates: start: 20050519, end: 20050528
  2. FENTANYL [Suspect]
     Indication: PAIN
     Dosage: 50 MCG/HR   EVERY 72 HOURS   TRANSDERMA
     Route: 062
     Dates: start: 20050519, end: 20050528
  3. NASACORT [Concomitant]
  4. AMITRIPTYLINE HCL [Concomitant]
  5. ZOLOFT [Concomitant]
  6. CELEBREX [Concomitant]
  7. CYCLOBENZAPRINE HCL [Concomitant]
  8. NEXIUM [Concomitant]
  9. DIAZEPAM [Concomitant]
  10. PREMARIN [Concomitant]
  11. GFN 600 MG/ PHENYL 20 MG [Concomitant]
  12. ALBUTEROL [Concomitant]
  13. BENADRYL [Concomitant]
  14. GLUCOSAMINE CHONDROITIN [Concomitant]
  15. MULTI-VITAMINS [Concomitant]
  16. SAW PALMETTO [Concomitant]
  17. ALBUTEROL [Concomitant]

REACTIONS (1)
  - DEATH [None]
